FAERS Safety Report 4534550-4 (Version None)
Quarter: 2004Q4

REPORT INFORMATION
  Report Type: 
  Country: None (occurrence: None)
  Receive Date: 20041214
  Receipt Date: 20041016
  Transmission Date: 20050328
  Serious: No
  Sender: FDA-Public Use
  Company Number: 2004240570US

PATIENT
  Age: 26 Year
  Sex: Female
  Weight: 54.4 kg

DRUGS (4)
  1. BEXTRA [Suspect]
     Indication: SWELLING
     Dosage: 10 MG, QD, ORAL
     Route: 048
     Dates: start: 20040908, end: 20040922
  2. DARVOCET-N 100 [Concomitant]
  3. IBUPROFEN [Concomitant]
  4. TYLENOL [Concomitant]

REACTIONS (3)
  - ANXIETY [None]
  - CHEST PAIN [None]
  - SKIN DISCOLOURATION [None]
